FAERS Safety Report 7945373-8 (Version None)
Quarter: 2011Q4

REPORT INFORMATION
  Report Type: 
  Country: None (occurrence: None)
  Receive Date: 20111129
  Receipt Date: 20110601
  Transmission Date: 20120403
  Serious: No
  Sender: FDA-Public Use
  Company Number: US-GLAXOSMITHKLINE-A0930677A

PATIENT
  Age: 33 Year
  Sex: Male

DRUGS (1)
  1. WELLBUTRIN SR [Suspect]
     Dosage: 200MG UNKNOWN
     Route: 065
     Dates: start: 20060118, end: 20110601

REACTIONS (4)
  - NAUSEA [None]
  - MALAISE [None]
  - DIZZINESS [None]
  - PRODUCT ODOUR ABNORMAL [None]
